FAERS Safety Report 5648341-4 (Version None)
Quarter: 2008Q1

REPORT INFORMATION
  Report Type: 
  Country: None (occurrence: None)
  Receive Date: 20080304
  Receipt Date: 20080226
  Transmission Date: 20080703
  Serious: Yes (Disabling)
  Sender: FDA-Public Use
  Company Number: DE-TEVA-167184ISR

PATIENT
  Sex: Female

DRUGS (1)
  1. BECLOMETHASONE DIPROPIONATE [Suspect]
     Indication: ASTHMA
     Route: 048
     Dates: start: 20071020, end: 20080120

REACTIONS (5)
  - DYSPHAGIA [None]
  - HYPOAESTHESIA ORAL [None]
  - ORAL PAIN [None]
  - PALATAL DISORDER [None]
  - SPEECH DISORDER [None]
